FAERS Safety Report 5929995-1 (Version None)
Quarter: 2008Q4

REPORT INFORMATION
  Report Type: 
  Country: None (occurrence: None)
  Receive Date: 20081024
  Receipt Date: 20081014
  Transmission Date: 20090506
  Serious: Yes (Hospitalization)
  Sender: FDA-Public Use
  Company Number: KR-PFIZER INC-2008081355

PATIENT
  Sex: Male
  Weight: 65 kg

DRUGS (5)
  1. CADUET [Suspect]
     Indication: HYPERTENSION
     Dosage: TEXT:5 MG/10 MG
     Route: 048
     Dates: start: 20080327
  2. ASPIRIN [Concomitant]
     Route: 048
     Dates: start: 20060101
  3. CANDESARTAN CILEXETIL [Concomitant]
     Route: 048
     Dates: start: 20060101
  4. METFORMIN HYDROCHLORIDE [Concomitant]
     Route: 048
  5. GEWORIN [Concomitant]
     Dosage: TEXT:2 TABLETS
     Route: 048
     Dates: start: 20080720, end: 20080922

REACTIONS (1)
  - PANCREATIC CARCINOMA [None]
